FAERS Safety Report 11339928 (Version 1)
Quarter: 2015Q3

REPORT INFORMATION
  Report Type: Spontaneous
  Country: IT (occurrence: None)
  Receive Date: 20150803
  Receipt Date: 20150803
  Transmission Date: 20151125
  Serious: Yes (Other)
  Sender: FDA-Public Use
  Company Number: 2015-11850

PATIENT
  Age: 76 Year
  Sex: Male

DRUGS (1)
  1. AFLIBERCEPT IAI (AFLIBERCEPT) INJECTION [Suspect]
     Active Substance: AFLIBERCEPT
     Indication: NEOVASCULAR AGE-RELATED MACULAR DEGENERATION
     Route: 031

REACTIONS (4)
  - Acute kidney injury [None]
  - Proteinuria [None]
  - Discomfort [None]
  - Hypertensive crisis [None]
